FAERS Safety Report 9694827 (Version 1)
Quarter: 2013Q4

REPORT INFORMATION
  Report Type: Spontaneous
  Country: FR (occurrence: FR)
  Receive Date: 20131119
  Receipt Date: 20131119
  Transmission Date: 20140711
  Serious: Yes (Hospitalization, Other)
  Sender: FDA-Public Use
  Company Number: FR-MERCK-1311FRA006493

PATIENT
  Age: 64 Year
  Sex: Male

DRUGS (1)
  1. TIENAM 500MG/500MG, POUDRE POUR PERFUSION [Suspect]
     Indication: LUNG DISORDER
     Dosage: UNK
     Route: 048
     Dates: start: 20131018, end: 20131024

REACTIONS (1)
  - Pancreatitis acute [Recovered/Resolved]
